FAERS Safety Report 23347407 (Version 2)
Quarter: 2024Q1

REPORT INFORMATION
  Report Type: Spontaneous
  Country: US (occurrence: US)
  Receive Date: 20231228
  Receipt Date: 20240126
  Transmission Date: 20240410
  Serious: Yes (Hospitalization)
  Sender: FDA-Public Use
  Company Number: US-PFIZER INC-202300452025

PATIENT
  Age: 66 Year
  Sex: Female

DRUGS (1)
  1. METHOTREXATE SODIUM [Suspect]
     Active Substance: METHOTREXATE SODIUM
     Dosage: UNK

REACTIONS (12)
  - Urinary tract infection [Unknown]
  - Drug ineffective [Unknown]
  - Infection [Not Recovered/Not Resolved]
  - Arthrodesis [Unknown]
  - Arthralgia [Recovering/Resolving]
  - Tendon rupture [Unknown]
  - Arthralgia [Not Recovered/Not Resolved]
  - Fall [Unknown]
  - Skin laceration [Unknown]
  - Arthralgia [Not Recovered/Not Resolved]
  - Alopecia [Unknown]
  - Pain [Unknown]
